FAERS Safety Report 7688535-X (Version None)
Quarter: 2011Q3

REPORT INFORMATION
  Report Type: 
  Country: None (occurrence: None)
  Receive Date: 20110817
  Receipt Date: 20110817
  Transmission Date: 20111222
  Serious: Yes (Disabling, Other)
  Sender: FDA-Public Use
  Company Number: None

PATIENT
  Age: 32 Year
  Sex: Male
  Weight: 63.502 kg

DRUGS (1)
  1. NORTRIPTYLINE HCL [Suspect]
     Indication: MIGRAINE
     Dosage: 50MG
     Route: 048
     Dates: start: 20110804, end: 20110809

REACTIONS (7)
  - GAIT DISTURBANCE [None]
  - PAIN IN JAW [None]
  - COORDINATION ABNORMAL [None]
  - TRISMUS [None]
  - NECK PAIN [None]
  - HEADACHE [None]
  - INSOMNIA [None]
